FAERS Safety Report 20543472 (Version 1)
Quarter: 2022Q1

REPORT INFORMATION
  Report Type: Spontaneous
  Country: US (occurrence: US)
  Receive Date: 20220302
  Receipt Date: 20220302
  Transmission Date: 20220423
  Serious: Yes (Hospitalization)
  Sender: FDA-Public Use
  Company Number: US-BIOVITRUM-2021US11973

PATIENT
  Sex: Female
  Weight: 4.2 kg

DRUGS (19)
  1. SYNAGIS [Suspect]
     Active Substance: PALIVIZUMAB
     Indication: Bone marrow transplant
     Route: 030
     Dates: start: 202110
  2. KEPPRA [Concomitant]
     Active Substance: LEVETIRACETAM
     Indication: Product used for unknown indication
  3. CYCLOSPORINE 250 MG/5ML AMPUL [Concomitant]
     Indication: Product used for unknown indication
  4. OSMOPREP COMPOUND [Concomitant]
     Indication: Product used for unknown indication
  5. SYNAGIS [Suspect]
     Active Substance: PALIVIZUMAB
     Indication: Antiviral prophylaxis
  6. MORPHINE SULFATE [Concomitant]
     Active Substance: MORPHINE SULFATE
     Indication: Product used for unknown indication
  7. KATERZIA 1 MG/ML ORAL SUSP [Concomitant]
     Indication: Product used for unknown indication
  8. VITAMIN D3 10(400)/ML DROPS [Concomitant]
     Indication: Product used for unknown indication
  9. MAGNESIUM ASCORBATE POWDER [Concomitant]
     Indication: Product used for unknown indication
  10. MEGESTROL ACETATE [Concomitant]
     Active Substance: MEGESTROL ACETATE
     Indication: Product used for unknown indication
  11. SULFAMETHOXAZOLE-TRIM [Concomitant]
     Indication: Product used for unknown indication
  12. LEVOFLOXACIN 0.5 % DROPS [Concomitant]
     Indication: Product used for unknown indication
  13. FOLIC ACID [Concomitant]
     Active Substance: FOLIC ACID
     Indication: Product used for unknown indication
  14. FLUDROCORTISONE ACETATE [Concomitant]
     Active Substance: FLUDROCORTISONE ACETATE
     Indication: Product used for unknown indication
  15. EPINEPHRINE [Concomitant]
     Active Substance: EPINEPHRINE
     Indication: Product used for unknown indication
  16. SYNAGIS [Suspect]
     Active Substance: PALIVIZUMAB
     Indication: Immunodeficiency
  17. NOXAFIL [Concomitant]
     Active Substance: POSACONAZOLE
     Indication: Product used for unknown indication
  18. CELLCEPT 200 MG/ML SUSP RECON [Concomitant]
     Indication: Product used for unknown indication
  19. SYNAGIS [Suspect]
     Active Substance: PALIVIZUMAB
     Indication: Krabbe^s disease

REACTIONS (1)
  - Metapneumovirus infection [Unknown]
